FAERS Safety Report 6476385-1 (Version None)
Quarter: 2009Q4

REPORT INFORMATION
  Report Type: 
  Country: None (occurrence: None)
  Receive Date: 20091207
  Receipt Date: 20091126
  Transmission Date: 20100525
  Serious: Yes (Hospitalization)
  Sender: FDA-Public Use
  Company Number: BR-BIOGENIDEC-2008BI027103

PATIENT
  Age: 42 Year
  Sex: Female

DRUGS (7)
  1. AVONEX [Suspect]
     Indication: MULTIPLE SCLEROSIS
     Route: 030
     Dates: start: 20090214
  2. AVONEX [Suspect]
     Route: 030
     Dates: start: 20050101, end: 20071001
  3. AVONEX [Suspect]
     Route: 030
     Dates: start: 20080301, end: 20081016
  4. AVONEX [Suspect]
     Route: 030
     Dates: end: 20090129
  5. OSTEONUTRI [Concomitant]
     Indication: OSTEOPOROSIS PROPHYLAXIS
  6. SELOKEN [Concomitant]
     Indication: ARRHYTHMIA
  7. NORIPURUM [Concomitant]
     Indication: ANAEMIA

REACTIONS (18)
  - AFFECT LABILITY [None]
  - ASTHENIA [None]
  - BALANCE DISORDER [None]
  - CENTRAL NERVOUS SYSTEM LESION [None]
  - CHILLS [None]
  - CRYING [None]
  - GASTRIC OPERATION [None]
  - HEADACHE [None]
  - INJECTION SITE PAIN [None]
  - MALNUTRITION [None]
  - MULTIPLE SCLEROSIS RELAPSE [None]
  - NEUROPATHY PERIPHERAL [None]
  - NUCLEAR MAGNETIC RESONANCE IMAGING ABNORMAL [None]
  - OSTEOPENIA [None]
  - PAIN [None]
  - PAIN IN EXTREMITY [None]
  - PARAESTHESIA [None]
  - PYREXIA [None]
